FAERS Safety Report 6524273-4 (Version None)
Quarter: 2009Q4

REPORT INFORMATION
  Report Type: 
  Country: None (occurrence: None)
  Receive Date: 20091231
  Receipt Date: 20091221
  Transmission Date: 20100525
  Serious: Yes (Life-Threatening)
  Sender: FDA-Public Use
  Company Number: JP-PFIZER INC-2009314510

PATIENT
  Age: 59 Year
  Sex: Female

DRUGS (2)
  1. SUNITINIB MALATE [Suspect]
     Indication: RENAL CELL CARCINOMA
     Dosage: 37.5 MG, 1X/DAY
     Route: 048
     Dates: start: 20090818
  2. THYRADIN S [Concomitant]
     Route: 048
     Dates: start: 20090908, end: 20090914

REACTIONS (1)
  - GASTROINTESTINAL PERFORATION [None]
